FAERS Safety Report 7396791-0 (Version None)
Quarter: 2011Q2

REPORT INFORMATION
  Report Type: 
  Country: None (occurrence: None)
  Receive Date: 20110406
  Receipt Date: 20110330
  Transmission Date: 20111010
  Serious: Yes (Other)
  Sender: FDA-Public Use
  Company Number: US-SANOFI-AVENTIS-2011SA020173

PATIENT
  Sex: Female
  Weight: 65.91 kg

DRUGS (6)
  1. CLOPIDOGREL [Suspect]
     Route: 065
  2. HYDROCHLOROTHIAZIDE [Concomitant]
  3. PLAVIX [Suspect]
     Indication: STENT PLACEMENT
     Route: 065
     Dates: start: 20100201
  4. SIMVASTATIN [Concomitant]
  5. MULTIVITAMIN [Concomitant]
  6. ATENOLOL [Concomitant]

REACTIONS (4)
  - CONTUSION [None]
  - LABORATORY TEST ABNORMAL [None]
  - VASCULAR OCCLUSION [None]
  - PRODUCT COUNTERFEIT [None]
